FAERS Safety Report 8762083 (Version 1)
Quarter: 2012Q4

REPORT INFORMATION
  Report Type: 
  Country: PT (occurrence: PT)
  Receive Date: 20120830
  Receipt Date: 20120830
  Transmission Date: 20130627
  Serious: Yes (Hospitalization, Other)
  Sender: FDA-Public Use
  Company Number: PT-GILEAD-2012-0054900

PATIENT
  Sex: Male

DRUGS (8)
  1. TRUVADA [Suspect]
     Indication: HIV INFECTION
     Dosage: 1 DF, QD
     Route: 048
     Dates: start: 200801, end: 200911
  2. TENOFOVIR DISOPROXIL FUMARATE [Suspect]
     Indication: HIV INFECTION
     Dosage: UNK
     Dates: start: 200404
  3. LOPINAVIR W/RITONAVIR [Concomitant]
     Indication: HIV INFECTION
     Dosage: 4 DF, QD
     Route: 048
     Dates: start: 200404
  4. PREGABALIN [Concomitant]
     Indication: EPILEPSY
     Route: 048
  5. ALENDRONIC ACID [Concomitant]
     Indication: OSTEOPOROSIS
     Dosage: 1 DF, Q1Wk
     Route: 048
     Dates: start: 2007
  6. CALCIUM + VITAMIN D [Concomitant]
     Dosage: 2 DF, UNK
     Route: 048
     Dates: start: 2007
  7. TESTOSTERONE [Concomitant]
     Indication: HYPOGONADISM
     Dosage: UNK
     Route: 030
     Dates: start: 200911
  8. METHADONE [Concomitant]
     Dosage: UNK
     Route: 048
     Dates: start: 2000

REACTIONS (3)
  - Hypogonadism [Unknown]
  - Osteoporosis [Unknown]
  - Fanconi syndrome acquired [Recovered/Resolved]
